FAERS Safety Report 13883632 (Version 1)
Quarter: 2017Q3

REPORT INFORMATION
  Report Type: Spontaneous
  Country: US (occurrence: US)
  Receive Date: 20170819
  Receipt Date: 20170819
  Transmission Date: 20171127
  Serious: No
  Sender: FDA-Public Use
  Company Number: PHEH2017US025206

PATIENT
  Age: 75 Year
  Sex: Male
  Weight: 95.24 kg

DRUGS (2)
  1. TYLENOL [Concomitant]
     Active Substance: ACETAMINOPHEN
     Indication: PRODUCT USED FOR UNKNOWN INDICATION
     Dosage: UNK UNK, PRN
     Route: 065
  2. CHOLESTYRAMINE FOR ORAL SUSPENSION USP [Suspect]
     Active Substance: CHOLESTYRAMINE
     Indication: ABDOMINAL PAIN UPPER
     Dosage: 1 U, BID
     Route: 048
     Dates: start: 20170802, end: 20170803

REACTIONS (7)
  - Oesophageal pain [Recovered/Resolved]
  - Nausea [Recovered/Resolved]
  - Movement disorder [Recovered/Resolved]
  - Hyperhidrosis [Recovered/Resolved]
  - Dyspnoea [Recovered/Resolved]
  - Abdominal distension [Recovered/Resolved]
  - Dysgeusia [Recovered/Resolved]

NARRATIVE: CASE EVENT DATE: 20170803
